FAERS Safety Report 12389158 (Version 1)
Quarter: 2016Q2

REPORT INFORMATION
  Report Type: Spontaneous
  Country: IL (occurrence: IL)
  Receive Date: 20160520
  Receipt Date: 20160520
  Transmission Date: 20160902
  Serious: Yes (Hospitalization)
  Sender: FDA-Public Use
  Company Number: IL-PFIZER INC-2016266907

PATIENT
  Age: 86 Year
  Sex: Female

DRUGS (2)
  1. AMIODARONE HCL [Suspect]
     Active Substance: AMIODARONE HYDROCHLORIDE
     Dosage: UNK
     Route: 065
  2. ELIQUIS [Concomitant]
     Active Substance: APIXABAN
     Dosage: 2.5 MG, 2X/DAY

REACTIONS (1)
  - Haematoma [Unknown]
